FAERS Safety Report 4809672-0 (Version None)
Quarter: 2005Q4

REPORT INFORMATION
  Report Type: 
  Country: None (occurrence: None)
  Receive Date: 20051021
  Receipt Date: 20040607
  Transmission Date: 20060501
  Serious: No
  Sender: FDA-Public Use
  Company Number: USA040669520

PATIENT
  Sex: Male

DRUGS (3)
  1. ZYPREXA [Suspect]
     Dosage: 5 MG DAY
  2. LITHIUM [Concomitant]
  3. DEPAKOTE [Concomitant]

REACTIONS (1)
  - WHITE BLOOD CELL COUNT DECREASED [None]
